FAERS Safety Report 6188546-X (Version None)
Quarter: 2009Q2

REPORT INFORMATION
  Report Type: 
  Country: None (occurrence: None)
  Receive Date: 20090513
  Receipt Date: 20090504
  Transmission Date: 20091009
  Serious: Yes (Death)
  Sender: FDA-Public Use
  Company Number: TW-BAXTER-2009BH008042

PATIENT
  Age: 76 Year
  Sex: Female

DRUGS (3)
  1. DIANEAL [Suspect]
     Indication: RENAL FAILURE CHRONIC
     Route: 033
  2. DIANEAL [Suspect]
     Route: 033
  3. NUTRINEAL PD4 UNKNOWN BAG [Suspect]
     Indication: RENAL FAILURE CHRONIC
     Route: 033

REACTIONS (3)
  - DIABETIC FOOT [None]
  - NECROSIS ISCHAEMIC [None]
  - SEPSIS [None]
